FAERS Safety Report 4359104-4 (Version None)
Quarter: 2004Q2

REPORT INFORMATION
  Report Type: 
  Country: None (occurrence: None)
  Receive Date: 20040512
  Receipt Date: 20040324
  Transmission Date: 20050107
  Serious: Yes (Other)
  Sender: FDA-Public Use
  Company Number: 200411461BCC

PATIENT
  Age: 75 Year
  Sex: Male
  Weight: 74.8435 kg

DRUGS (3)
  1. ALKA-SELTZER PLUS COLD [Suspect]
     Dosage: ORAL
     Route: 048
  2. HIGH BLOOD PRESSURE MEDICATION [Concomitant]
  3. ASPIRIN [Concomitant]

REACTIONS (1)
  - CEREBROVASCULAR ACCIDENT [None]
